FAERS Safety Report 4912985-5 (Version None)
Quarter: 2006Q1

REPORT INFORMATION
  Report Type: 
  Country: None (occurrence: None)
  Receive Date: 20060215
  Receipt Date: 20050426
  Transmission Date: 20060701
  Serious: Yes (Other)
  Sender: FDA-Public Use
  Company Number: US-NOVOPROD-243790

PATIENT
  Age: 66 Year
  Sex: Female

DRUGS (6)
  1. ACTIVELLA [Suspect]
     Indication: MENOPAUSAL SYMPTOMS
     Dosage: 0.5 - 1.0 TAB, QD
     Route: 048
     Dates: start: 20020919, end: 20030219
  2. PREMARIN [Suspect]
     Indication: MENOPAUSAL SYMPTOMS
     Dosage: .9 MG, UNK
     Dates: start: 19950101, end: 19960101
  3. PROVERA [Suspect]
     Indication: MENOPAUSAL SYMPTOMS
     Dosage: 10 MG, UNK
     Dates: start: 19950101, end: 19960101
  4. PREMPRO [Suspect]
     Indication: MENOPAUSAL SYMPTOMS
     Dosage: .625 MG/2.5 MG
     Dates: start: 19960101, end: 20020901
  5. MEDROXYPROGESTERONE [Suspect]
     Indication: MENOPAUSAL SYMPTOMS
     Dosage: 2.5 MG, UNK
     Dates: start: 20000419, end: 20000517
  6. ESTRATEST [Suspect]
     Indication: MENOPAUSAL SYMPTOMS
     Dosage: UNKNOWN
     Dates: start: 20000411, end: 20001019

REACTIONS (9)
  - ANXIETY [None]
  - BREAST CANCER [None]
  - DEPRESSION [None]
  - FEAR OF DISEASE [None]
  - LYMPHOEDEMA [None]
  - POSTOPERATIVE INFECTION [None]
  - SCAR [None]
  - STAPHYLOCOCCAL INFECTION [None]
  - WEIGHT INCREASED [None]
